FAERS Safety Report 19715582 (Version 4)
Quarter: 2022Q1

REPORT INFORMATION
  Report Type: Spontaneous
  Country: US (occurrence: US)
  Receive Date: 20210818
  Receipt Date: 20220117
  Transmission Date: 20220423
  Serious: No
  Sender: FDA-Public Use
  Company Number: US-SA-SAC20210816001055

PATIENT
  Age: 46 Year
  Sex: Male

DRUGS (1)
  1. DUPIXENT [Suspect]
     Active Substance: DUPILUMAB
     Indication: Dermatitis atopic
     Dosage: 300 MG, QOW
     Route: 058
     Dates: start: 20210608

REACTIONS (9)
  - Erythema [Unknown]
  - Rash pustular [Unknown]
  - Abdominal discomfort [Unknown]
  - Pruritus [Unknown]
  - Oral herpes [Unknown]
  - Conjunctivitis [Unknown]
  - Herpes simplex [Unknown]
  - Therapeutic response decreased [Unknown]
  - Inappropriate schedule of product administration [Recovered/Resolved]

NARRATIVE: CASE EVENT DATE: 20210101
